FAERS Safety Report 25577408 (Version 1)
Quarter: 2025Q3

REPORT INFORMATION
  Report Type: Spontaneous
  Country: CA (occurrence: CA)
  Receive Date: 20250718
  Receipt Date: 20250718
  Transmission Date: 20251020
  Serious: Yes (Congenital Anomaly)
  Sender: BRISTOL-MYERS SQUIBB COMPANY
  Company Number: CA-BRISTOL-MYERS SQUIBB COMPANY-2025-097330

PATIENT

DRUGS (137)
  1. ORENCIA [Suspect]
     Active Substance: ABATACEPT
     Indication: Product used for unknown indication
     Route: 064
  2. ORENCIA [Suspect]
     Active Substance: ABATACEPT
     Indication: Product used for unknown indication
     Route: 064
  3. ORENCIA [Suspect]
     Active Substance: ABATACEPT
     Route: 064
  4. ORENCIA [Suspect]
     Active Substance: ABATACEPT
     Route: 064
  5. ORENCIA [Suspect]
     Active Substance: ABATACEPT
     Route: 064
  6. ORENCIA [Suspect]
     Active Substance: ABATACEPT
     Route: 064
  7. ORENCIA [Suspect]
     Active Substance: ABATACEPT
     Route: 064
  8. AIMOVIG [Concomitant]
     Active Substance: ERENUMAB-AOOE
     Indication: Product used for unknown indication
     Route: 064
  9. APREMILAST [Concomitant]
     Active Substance: APREMILAST
     Indication: Product used for unknown indication
     Route: 064
  10. APREMILAST [Concomitant]
     Active Substance: APREMILAST
     Route: 064
  11. CELECOXIB [Concomitant]
     Active Substance: CELECOXIB
     Indication: Product used for unknown indication
     Route: 064
  12. COSENTYX [Concomitant]
     Active Substance: SECUKINUMAB
     Indication: Product used for unknown indication
     Route: 064
  13. DICLOFENAC [Concomitant]
     Active Substance: DICLOFENAC
     Indication: Product used for unknown indication
     Route: 064
  14. DICLOFENAC POTASSIUM [Concomitant]
     Active Substance: DICLOFENAC POTASSIUM
     Indication: Product used for unknown indication
     Route: 064
  15. ERELZI [Concomitant]
     Active Substance: ETANERCEPT-SZZS
     Indication: Product used for unknown indication
     Route: 064
  16. ERELZI [Concomitant]
     Active Substance: ETANERCEPT-SZZS
     Route: 064
  17. GOLIMUMAB [Concomitant]
     Active Substance: GOLIMUMAB
     Indication: Product used for unknown indication
     Route: 064
  18. GOLIMUMAB [Concomitant]
     Active Substance: GOLIMUMAB
     Route: 064
  19. IMURAN [Concomitant]
     Active Substance: AZATHIOPRINE
     Indication: Product used for unknown indication
     Route: 064
  20. METHOTREXATE [Concomitant]
     Active Substance: METHOTREXATE
     Indication: Product used for unknown indication
     Route: 064
  21. METHOTREXATE [Concomitant]
     Active Substance: METHOTREXATE
     Route: 064
  22. METHOTREXATE [Concomitant]
     Active Substance: METHOTREXATE
     Route: 064
  23. METHOTREXATE [Concomitant]
     Active Substance: METHOTREXATE
     Route: 064
  24. METHOTREXATE [Concomitant]
     Active Substance: METHOTREXATE
     Route: 064
  25. METHOTREXATE [Concomitant]
     Active Substance: METHOTREXATE
     Route: 064
  26. METHOTREXATE [Concomitant]
     Active Substance: METHOTREXATE
     Route: 064
  27. METHOTREXATE [Concomitant]
     Active Substance: METHOTREXATE
     Route: 064
  28. METHOTREXATE [Concomitant]
     Active Substance: METHOTREXATE
     Route: 064
  29. METHOTREXATE [Concomitant]
     Active Substance: METHOTREXATE
     Route: 064
  30. METHOTREXATE [Concomitant]
     Active Substance: METHOTREXATE
     Route: 064
  31. METHOTREXATE [Concomitant]
     Active Substance: METHOTREXATE
     Route: 064
  32. METHOTREXATE [Concomitant]
     Active Substance: METHOTREXATE
     Route: 064
  33. METHOTREXATE [Concomitant]
     Active Substance: METHOTREXATE
     Route: 064
  34. METHOTREXATE [Concomitant]
     Active Substance: METHOTREXATE
     Route: 064
  35. METHOTREXATE [Concomitant]
     Active Substance: METHOTREXATE
     Route: 064
  36. NAPROXEN [Concomitant]
     Active Substance: NAPROXEN
     Indication: Product used for unknown indication
     Route: 064
  37. NAPROXEN SODIUM [Concomitant]
     Active Substance: NAPROXEN SODIUM
     Indication: Product used for unknown indication
     Route: 064
  38. NICOTINAMIDE [Concomitant]
     Active Substance: NIACINAMIDE
     Indication: Product used for unknown indication
     Route: 064
  39. NUCALA [Concomitant]
     Active Substance: MEPOLIZUMAB
     Indication: Product used for unknown indication
     Route: 064
  40. OXYCODONE [Concomitant]
     Active Substance: OXYCODONE
     Indication: Product used for unknown indication
     Route: 064
  41. OXYCODONE TEREPHTHALATE [Concomitant]
     Active Substance: OXYCODONE TEREPHTHALATE
     Indication: Product used for unknown indication
     Route: 064
  42. PERIOGARD [Concomitant]
     Active Substance: CHLORHEXIDINE GLUCONATE
     Indication: Product used for unknown indication
     Route: 064
  43. PHENYLEPHRINE HYDROCHLORIDE [Concomitant]
     Active Substance: PHENYLEPHRINE HYDROCHLORIDE
     Indication: Product used for unknown indication
     Route: 064
  44. PHTHALYLSULFATHIAZOLE [Concomitant]
     Active Substance: PHTHALYLSULFATHIAZOLE
     Indication: Product used for unknown indication
     Route: 064
  45. PHTHALYLSULFATHIAZOLE [Concomitant]
     Active Substance: PHTHALYLSULFATHIAZOLE
     Route: 064
  46. PHTHALYLSULFATHIAZOLE [Concomitant]
     Active Substance: PHTHALYLSULFATHIAZOLE
     Route: 064
  47. PHTHALYLSULFATHIAZOLE [Concomitant]
     Active Substance: PHTHALYLSULFATHIAZOLE
     Route: 064
  48. PHTHALYLSULFATHIAZOLE [Concomitant]
     Active Substance: PHTHALYLSULFATHIAZOLE
     Route: 064
  49. PHTHALYLSULFATHIAZOLE [Concomitant]
     Active Substance: PHTHALYLSULFATHIAZOLE
     Route: 064
  50. PREDNISONE [Concomitant]
     Active Substance: PREDNISONE
     Indication: Product used for unknown indication
     Route: 064
  51. PREDNISONE [Concomitant]
     Active Substance: PREDNISONE
     Route: 064
  52. PREDNISONE [Concomitant]
     Active Substance: PREDNISONE
     Route: 064
  53. PREDNISONE [Concomitant]
     Active Substance: PREDNISONE
     Route: 064
  54. PREDNISONE [Concomitant]
     Active Substance: PREDNISONE
     Route: 064
  55. PREDNISONE [Concomitant]
     Active Substance: PREDNISONE
     Route: 064
  56. PREDNISONE [Concomitant]
     Active Substance: PREDNISONE
     Route: 064
  57. PREDNISONE [Concomitant]
     Active Substance: PREDNISONE
     Route: 064
  58. PREDNISONE [Concomitant]
     Active Substance: PREDNISONE
     Route: 064
  59. PSEUDOEPHEDRINE HYDROCHLORIDE [Concomitant]
     Active Substance: PSEUDOEPHEDRINE HYDROCHLORIDE
     Indication: Product used for unknown indication
     Route: 064
  60. PSEUDOEPHEDRINE HYDROCHLORIDE [Concomitant]
     Active Substance: PSEUDOEPHEDRINE HYDROCHLORIDE
     Route: 064
  61. PSEUDOEPHEDRINE HYDROCHLORIDE [Concomitant]
     Active Substance: PSEUDOEPHEDRINE HYDROCHLORIDE
     Route: 064
  62. PSEUDOEPHEDRINE HYDROCHLORIDE [Concomitant]
     Active Substance: PSEUDOEPHEDRINE HYDROCHLORIDE
     Route: 064
  63. PSEUDOEPHEDRINE HYDROCHLORIDE [Concomitant]
     Active Substance: PSEUDOEPHEDRINE HYDROCHLORIDE
     Route: 064
  64. RAMIPRIL [Concomitant]
     Active Substance: RAMIPRIL
     Indication: Product used for unknown indication
     Route: 064
  65. RAMIPRIL [Concomitant]
     Active Substance: RAMIPRIL
     Route: 064
  66. RANITIDINE HYDROCHLORIDE [Concomitant]
     Active Substance: RANITIDINE HYDROCHLORIDE
     Indication: Product used for unknown indication
     Route: 064
  67. CETIRIZINE HYDROCHLORIDE\PSEUDOEPHEDRINE HYDROCHLORIDE [Concomitant]
     Active Substance: CETIRIZINE HYDROCHLORIDE\PSEUDOEPHEDRINE HYDROCHLORIDE
     Indication: Product used for unknown indication
     Route: 064
  68. CETIRIZINE HYDROCHLORIDE\PSEUDOEPHEDRINE HYDROCHLORIDE [Concomitant]
     Active Substance: CETIRIZINE HYDROCHLORIDE\PSEUDOEPHEDRINE HYDROCHLORIDE
     Route: 064
  69. CETIRIZINE HYDROCHLORIDE\PSEUDOEPHEDRINE HYDROCHLORIDE [Concomitant]
     Active Substance: CETIRIZINE HYDROCHLORIDE\PSEUDOEPHEDRINE HYDROCHLORIDE
     Route: 064
  70. CETIRIZINE HYDROCHLORIDE\PSEUDOEPHEDRINE HYDROCHLORIDE [Concomitant]
     Active Substance: CETIRIZINE HYDROCHLORIDE\PSEUDOEPHEDRINE HYDROCHLORIDE
     Route: 064
  71. CETIRIZINE HYDROCHLORIDE\PSEUDOEPHEDRINE HYDROCHLORIDE [Concomitant]
     Active Substance: CETIRIZINE HYDROCHLORIDE\PSEUDOEPHEDRINE HYDROCHLORIDE
     Route: 064
  72. REMICADE [Concomitant]
     Active Substance: INFLIXIMAB
     Indication: Product used for unknown indication
     Route: 064
  73. REMICADE [Concomitant]
     Active Substance: INFLIXIMAB
     Route: 064
  74. REMICADE [Concomitant]
     Active Substance: INFLIXIMAB
     Route: 064
  75. REMICADE [Concomitant]
     Active Substance: INFLIXIMAB
     Route: 064
  76. REMICADE [Concomitant]
     Active Substance: INFLIXIMAB
     Route: 064
  77. REMICADE [Concomitant]
     Active Substance: INFLIXIMAB
     Route: 064
  78. REMICADE [Concomitant]
     Active Substance: INFLIXIMAB
     Route: 064
  79. REMICADE [Concomitant]
     Active Substance: INFLIXIMAB
     Route: 064
  80. RITUXIMAB [Concomitant]
     Active Substance: RITUXIMAB
     Indication: Product used for unknown indication
     Route: 064
  81. RITUXIMAB [Concomitant]
     Active Substance: RITUXIMAB
     Route: 064
  82. RITUXIMAB [Concomitant]
     Active Substance: RITUXIMAB
     Route: 064
  83. RITUXIMAB [Concomitant]
     Active Substance: RITUXIMAB
     Route: 064
  84. RITUXIMAB [Concomitant]
     Active Substance: RITUXIMAB
     Route: 064
  85. RITUXIMAB [Concomitant]
     Active Substance: RITUXIMAB
     Route: 064
  86. RITUXIMAB [Concomitant]
     Active Substance: RITUXIMAB
     Route: 064
  87. SULFASALAZINE [Concomitant]
     Active Substance: SULFASALAZINE
     Indication: Product used for unknown indication
     Route: 064
  88. SIMPONI [Concomitant]
     Active Substance: GOLIMUMAB
     Indication: Product used for unknown indication
     Route: 064
  89. SIMPONI [Concomitant]
     Active Substance: GOLIMUMAB
     Route: 064
  90. SIMPONI [Concomitant]
     Active Substance: GOLIMUMAB
     Route: 064
  91. SIRUKUMAB [Concomitant]
     Active Substance: SIRUKUMAB
     Indication: Product used for unknown indication
     Route: 064
  92. GOLD SODIUM THIOMALATE [Concomitant]
     Active Substance: GOLD SODIUM THIOMALATE
     Indication: Product used for unknown indication
     Route: 064
  93. GOLD SODIUM THIOMALATE [Concomitant]
     Active Substance: GOLD SODIUM THIOMALATE
     Route: 064
  94. SULFASALAZINE [Concomitant]
     Active Substance: SULFASALAZINE
     Indication: Product used for unknown indication
     Route: 064
  95. SULFASALAZINE [Concomitant]
     Active Substance: SULFASALAZINE
     Route: 064
  96. SULFASALAZINE [Concomitant]
     Active Substance: SULFASALAZINE
     Route: 064
  97. SULFASALAZINE [Concomitant]
     Active Substance: SULFASALAZINE
     Route: 064
  98. SULFASALAZINE [Concomitant]
     Active Substance: SULFASALAZINE
     Route: 064
  99. SULFASALAZINE [Concomitant]
     Active Substance: SULFASALAZINE
     Route: 064
  100. SULFASALAZINE [Concomitant]
     Active Substance: SULFASALAZINE
     Route: 064
  101. SULFASALAZINE [Concomitant]
     Active Substance: SULFASALAZINE
     Route: 064
  102. SULFASALAZINE [Concomitant]
     Active Substance: SULFASALAZINE
     Route: 064
  103. SULFASALAZINE [Concomitant]
     Active Substance: SULFASALAZINE
     Route: 064
  104. SULFASALAZINE [Concomitant]
     Active Substance: SULFASALAZINE
     Route: 064
  105. SULFASALAZINE [Concomitant]
     Active Substance: SULFASALAZINE
     Route: 064
  106. SULFASALAZINE [Concomitant]
     Active Substance: SULFASALAZINE
     Route: 064
  107. SULFASALAZINE [Concomitant]
     Active Substance: SULFASALAZINE
     Route: 064
  108. SULFASALAZINE [Concomitant]
     Active Substance: SULFASALAZINE
     Route: 064
  109. SULFASALAZINE [Concomitant]
     Active Substance: SULFASALAZINE
     Route: 064
  110. SULFASALAZINE [Concomitant]
     Active Substance: SULFASALAZINE
     Route: 064
  111. SULFASALAZINE [Concomitant]
     Active Substance: SULFASALAZINE
     Route: 064
  112. SULFASALAZINE [Concomitant]
     Active Substance: SULFASALAZINE
     Route: 064
  113. SULFASALAZINE [Concomitant]
     Active Substance: SULFASALAZINE
     Route: 064
  114. SULFASALAZINE [Concomitant]
     Active Substance: SULFASALAZINE
     Route: 064
  115. SULFASALAZINE [Concomitant]
     Active Substance: SULFASALAZINE
     Route: 064
  116. SULFASALAZINE [Concomitant]
     Active Substance: SULFASALAZINE
     Route: 064
  117. SULFASALAZINE [Concomitant]
     Active Substance: SULFASALAZINE
     Route: 064
  118. TOCILIZUMAB [Concomitant]
     Active Substance: TOCILIZUMAB
     Indication: Product used for unknown indication
     Route: 064
  119. TOCILIZUMAB [Concomitant]
     Active Substance: TOCILIZUMAB
     Route: 064
  120. TOCILIZUMAB [Concomitant]
     Active Substance: TOCILIZUMAB
     Route: 064
  121. TOCILIZUMAB [Concomitant]
     Active Substance: TOCILIZUMAB
     Route: 064
  122. TOCILIZUMAB [Concomitant]
     Active Substance: TOCILIZUMAB
     Route: 064
  123. TOCILIZUMAB [Concomitant]
     Active Substance: TOCILIZUMAB
     Route: 064
  124. TOFACITINIB [Concomitant]
     Active Substance: TOFACITINIB
     Indication: Product used for unknown indication
     Route: 064
  125. TOFACITINIB CITRATE [Concomitant]
     Active Substance: TOFACITINIB CITRATE
     Indication: Product used for unknown indication
     Route: 064
  126. TOPIRAMATE [Concomitant]
     Active Substance: TOPIRAMATE
     Indication: Product used for unknown indication
     Route: 064
  127. TOPIRAMATE [Concomitant]
     Active Substance: TOPIRAMATE
     Route: 064
  128. TRAMADOL HYDROCHLORIDE [Concomitant]
     Active Substance: TRAMADOL HYDROCHLORIDE
     Indication: Product used for unknown indication
     Route: 064
  129. VITAMIN C [Concomitant]
     Active Substance: ASCORBIC ACID
     Indication: Product used for unknown indication
     Route: 064
  130. XELJANZ [Concomitant]
     Active Substance: TOFACITINIB CITRATE
     Indication: Product used for unknown indication
     Route: 064
  131. XELJANZ [Concomitant]
     Active Substance: TOFACITINIB CITRATE
     Route: 064
  132. XELJANZ [Concomitant]
     Active Substance: TOFACITINIB CITRATE
     Route: 064
  133. XELJANZ [Concomitant]
     Active Substance: TOFACITINIB CITRATE
     Route: 064
  134. XELJANZ [Concomitant]
     Active Substance: TOFACITINIB CITRATE
     Route: 064
  135. XELJANZ [Concomitant]
     Active Substance: TOFACITINIB CITRATE
     Route: 064
  136. XELJANZ [Concomitant]
     Active Substance: TOFACITINIB CITRATE
     Route: 064
  137. ZINC [Concomitant]
     Active Substance: ZINC
     Indication: Product used for unknown indication
     Route: 064

REACTIONS (2)
  - Congenital anomaly [Unknown]
  - Foetal exposure during pregnancy [Unknown]
